FAERS Safety Report 16676903 (Version 1)
Quarter: 2019Q3

REPORT INFORMATION
  Report Type: Spontaneous
  Country: US (occurrence: US)
  Receive Date: 20190807
  Receipt Date: 20190807
  Transmission Date: 20191004
  Serious: Yes (Life-Threatening, Hospitalization, Other)
  Sender: FDA-Public Use
  Company Number: US-AUROBINDO-AUR-APL-2019-044445

PATIENT

DRUGS (1)
  1. METHYLPREDNISOLONE. [Suspect]
     Active Substance: METHYLPREDNISOLONE
     Indication: PULMONARY TOXICITY
     Dosage: 500 MILLIGRAM, TWO TIMES A DAY (HIGH DOSE)
     Route: 042

REACTIONS (1)
  - Drug ineffective [Not Recovered/Not Resolved]
